FAERS Safety Report 8053764-2 (Version None)
Quarter: 2011Q4

REPORT INFORMATION
  Report Type: 
  Country: None (occurrence: None)
  Receive Date: 20111213
  Receipt Date: 20110815
  Transmission Date: 20120403
  Serious: No
  Sender: FDA-Public Use
  Company Number: 2011SP038443

PATIENT
  Sex: Female

DRUGS (4)
  1. SAPHRIS [Suspect]
     Indication: SCHIZOAFFECTIVE DISORDER
     Dosage: 5 MG; BID;
     Dates: start: 20110617, end: 20110718
  2. SAPHRIS [Suspect]
     Indication: HALLUCINATION, AUDITORY
     Dosage: 5 MG; BID;
     Dates: start: 20110617, end: 20110718
  3. SAPHRIS [Suspect]
     Indication: AFFECTIVE DISORDER
     Dosage: 5 MG; BID;
     Dates: start: 20110617, end: 20110718
  4. TRILEPTAL [Concomitant]

REACTIONS (1)
  - BLOOD GLUCOSE INCREASED [None]
